FAERS Safety Report 10391814 (Version 1)
Quarter: 2014Q3

REPORT INFORMATION
  Report Type: Spontaneous
  Country: FR (occurrence: FR)
  Receive Date: 20140819
  Receipt Date: 20140819
  Transmission Date: 20150326
  Serious: Yes (Hospitalization)
  Sender: FDA-Public Use
  Company Number: FR-ROCHE-1447395

PATIENT
  Age: 1 Year
  Sex: Male
  Weight: 8.3 kg

DRUGS (13)
  1. ORAMORPH SR SUSTAINED RELEASE [Interacting]
     Active Substance: MORPHINE SULFATE
     Indication: PRODUCT USED FOR UNKNOWN INDICATION
     Dosage: THEN 3.75 MG/H
     Route: 048
     Dates: start: 20140708, end: 20140709
  2. SOLUPRED (FRANCE) [Concomitant]
     Active Substance: PREDNISOLONE
     Route: 065
  3. KEPPRA [Concomitant]
     Active Substance: LEVETIRACETAM
  4. SABRIL [Concomitant]
     Active Substance: VIGABATRIN
     Route: 065
  5. RIVOTRIL [Suspect]
     Active Substance: CLONAZEPAM
     Indication: PRODUCT USED FOR UNKNOWN INDICATION
     Route: 048
     Dates: start: 20140709, end: 20140709
  6. RIVOTRIL [Interacting]
     Active Substance: CLONAZEPAM
     Route: 065
     Dates: start: 20131208, end: 20131211
  7. LASILIX [Concomitant]
     Active Substance: FUROSEMIDE
     Route: 065
  8. LEVOCARNIL [Concomitant]
     Active Substance: LEVOCARNITINE
     Route: 065
  9. DOLIPRANE [Concomitant]
     Active Substance: ACETAMINOPHEN
  10. GARDENAL [Concomitant]
     Active Substance: PHENOBARBITAL
     Route: 065
  11. SPASFON (FRANCE) [Concomitant]
     Active Substance: PHLOROGLUCINOL
  12. DEPAKINE [Concomitant]
     Active Substance: VALPROATE SODIUM
  13. AUGMENTIN [Concomitant]
     Active Substance: AMOXICILLIN\CLAVULANATE POTASSIUM

REACTIONS (2)
  - Respiratory distress [Unknown]
  - Drug interaction [Unknown]

NARRATIVE: CASE EVENT DATE: 20140709
